FAERS Safety Report 9360651 (Version 2)
Quarter: 2013Q3

REPORT INFORMATION
  Report Type: Spontaneous
  Country: SE (occurrence: SE)
  Receive Date: 20130621
  Receipt Date: 20130701
  Transmission Date: 20140515
  Serious: Yes (Other)
  Sender: FDA-Public Use
  Company Number: SE-JNJFOC-20130611850

PATIENT
  Age: 60 Year
  Sex: Male

DRUGS (5)
  1. XARELTO [Suspect]
     Indication: CEREBROVASCULAR ACCIDENT PROPHYLAXIS
     Route: 048
     Dates: start: 20130508, end: 20130612
  2. XARELTO [Suspect]
     Indication: CARDIAC FIBRILLATION
     Route: 048
     Dates: start: 20130508, end: 20130612
  3. SIMVASTIN [Concomitant]
     Route: 065
  4. AMLODIPINE [Concomitant]
     Route: 065
  5. SALURES [Concomitant]
     Route: 065

REACTIONS (1)
  - Gout [Recovering/Resolving]
